FAERS Safety Report 16923704 (Version 2)
Quarter: 2020Q3

REPORT INFORMATION
  Report Type: Spontaneous
  Country: CN (occurrence: CN)
  Receive Date: 20191016
  Receipt Date: 20200731
  Transmission Date: 20201102
  Serious: Yes (Other)
  Sender: FDA-Public Use
  Company Number: CN-SUN PHARMACEUTICAL INDUSTRIES LTD-2019R1-223649

PATIENT
  Age: 30 Year
  Sex: Female

DRUGS (1)
  1. METHOTREXATE. [Suspect]
     Active Substance: METHOTREXATE
     Indication: PLACENTA ACCRETA
     Dosage: LOW?DOSE
     Route: 065

REACTIONS (3)
  - Myelosuppression [Recovering/Resolving]
  - Liver injury [Recovering/Resolving]
  - Mucosal inflammation [Recovering/Resolving]
